FAERS Safety Report 10563685 (Version 8)
Quarter: 2022Q4

REPORT INFORMATION
  Report Type: Report from Study
  Country: JP (occurrence: JP)
  Receive Date: 20141104
  Receipt Date: 20221021
  Transmission Date: 20230113
  Serious: Yes (Hospitalization)
  Sender: FDA-Public Use
  Company Number: JP-BAYER-2014-158276

PATIENT
  Age: 55 Year
  Sex: Female
  Weight: 64.5 kg

DRUGS (21)
  1. NEXAVAR [Suspect]
     Active Substance: SORAFENIB
     Indication: Papillary thyroid cancer
     Dosage: 400 MG, BID
     Route: 048
     Dates: start: 20140909, end: 20140923
  2. ZOTEPINE [Suspect]
     Active Substance: ZOTEPINE
     Route: 048
  3. CHLORPROMAZINE HYDROCHLORIDE\PHENOBARBITAL\PROMETHAZINE HYDROCHLORIDE [Suspect]
     Active Substance: CHLORPROMAZINE HYDROCHLORIDE\PHENOBARBITAL\PROMETHAZINE HYDROCHLORIDE
     Dosage: 1 DF
     Route: 048
  4. ZOPICLONE [Suspect]
     Active Substance: ZOPICLONE
     Route: 048
  5. SULPIRIDE [Suspect]
     Active Substance: SULPIRIDE
     Route: 048
  6. HALOPERIDOL [Suspect]
     Active Substance: HALOPERIDOL
     Route: 048
  7. ZYPREXA [Suspect]
     Active Substance: OLANZAPINE
  8. RISPERDAL [Suspect]
     Active Substance: RISPERIDONE
  9. LORAZEPAM [Suspect]
     Active Substance: LORAZEPAM
     Route: 048
  10. SENNOSIDES A AND B [Concomitant]
     Active Substance: SENNOSIDES A AND B
     Route: 048
  11. SUCRALFATE [Concomitant]
     Active Substance: SUCRALFATE
     Route: 048
  12. MOSAPRIDE CITRATE [Concomitant]
     Active Substance: MOSAPRIDE CITRATE
     Route: 048
  13. MAGNESIUM OXIDE [Concomitant]
     Active Substance: MAGNESIUM OXIDE
     Route: 048
  14. ALFAROL [Concomitant]
     Active Substance: ALFACALCIDOL
     Dosage: 1 ?G
     Route: 048
     Dates: start: 200505
  15. LEVOTHYROXINE [Concomitant]
     Active Substance: LEVOTHYROXINE
     Indication: Papillary thyroid cancer
     Dosage: 150 ?G
     Route: 048
     Dates: start: 200505
  16. NASONEX [Concomitant]
     Active Substance: MOMETASONE FUROATE
     Route: 045
  17. GLYCOSAMINOGLYCANS [Concomitant]
     Active Substance: GLYCOSAMINOGLYCANS
     Indication: Drug toxicity prophylaxis
     Dosage: UNK, QS
     Route: 061
  18. KERATINAMIN [UREA] [Concomitant]
     Indication: Drug toxicity prophylaxis
     Route: 061
  19. DIFLUPREDNATE [Concomitant]
     Active Substance: DIFLUPREDNATE
     Route: 061
  20. LOPERAMIDE HYDROCHLORIDE [Concomitant]
     Active Substance: LOPERAMIDE HYDROCHLORIDE
     Route: 048
  21. CALCIUM POLYCARBOPHIL [Concomitant]
     Active Substance: CALCIUM POLYCARBOPHIL
     Route: 048

REACTIONS (10)
  - Clonic convulsion [Recovering/Resolving]
  - Posterior reversible encephalopathy syndrome [Recovered/Resolved with Sequelae]
  - Altered state of consciousness [Recovering/Resolving]
  - Haematemesis [Recovering/Resolving]
  - Palmar-plantar erythrodysaesthesia syndrome [Recovering/Resolving]
  - Alopecia [Recovering/Resolving]
  - Physical deconditioning [Recovering/Resolving]
  - Otorrhoea [Recovering/Resolving]
  - Otitis media chronic [Recovering/Resolving]
  - Mastoiditis [Recovering/Resolving]

NARRATIVE: CASE EVENT DATE: 20140916
